FAERS Safety Report 10671314 (Version 1)
Quarter: 2014Q4

REPORT INFORMATION
  Report Type: Spontaneous
  Country: US (occurrence: None)
  Receive Date: 20141222
  Receipt Date: 20141222
  Transmission Date: 20150529
  Serious: Yes (Disabling)
  Sender: FDA-Public Use
  Company Number: None

PATIENT
  Age: 26 Year
  Sex: Female

DRUGS (1)
  1. BOTOX [Suspect]
     Active Substance: ONABOTULINUMTOXINA
     Indication: TORTICOLLIS
     Dosage: 25 UNITS, EVERY 3 MONTHS, INTO THE MUSCLE

REACTIONS (7)
  - General physical health deterioration [None]
  - Thyroid neoplasm [None]
  - Hypophagia [None]
  - Hyperthyroidism [None]
  - Dyspnoea [None]
  - Dysphagia [None]
  - Weight decreased [None]

NARRATIVE: CASE EVENT DATE: 20141022
